FAERS Safety Report 19707478 (Version 1)
Quarter: 2021Q3

REPORT INFORMATION
  Report Type: Report from Study
  Country: CN (occurrence: CN)
  Receive Date: 20210817
  Receipt Date: 20210817
  Transmission Date: 20211014
  Serious: Yes (Hospitalization)
  Sender: FDA-Public Use
  Company Number: CN-ROCHE-2541407

PATIENT
  Age: 60 Year
  Sex: Male
  Weight: 51 kg

DRUGS (31)
  1. PEGYLATED RECOMBINANT HUMAN GRANULOCYTE COLONY?STIMULATING FACTOR [Concomitant]
     Route: 058
     Dates: start: 20200109, end: 20200109
  2. SOLU?MEDROL [Concomitant]
     Active Substance: METHYLPREDNISOLONE SODIUM SUCCINATE
     Route: 042
     Dates: start: 20200203, end: 20200205
  3. PREDNISONE ACETATE [Concomitant]
     Active Substance: PREDNISONE ACETATE
     Route: 048
     Dates: start: 20200212, end: 20200214
  4. INDOMETACIN [Concomitant]
     Active Substance: INDOMETHACIN
     Route: 054
     Dates: start: 20200220, end: 20200220
  5. OMEPRAZOLE. [Concomitant]
     Active Substance: OMEPRAZOLE
     Route: 048
     Dates: start: 20200107, end: 20200111
  6. OMEPRAZOLE SODIUM [Concomitant]
     Active Substance: OMEPRAZOLE SODIUM
     Route: 042
     Dates: start: 20200131, end: 20200206
  7. PREDNISONE ACETATE [Concomitant]
     Active Substance: PREDNISONE ACETATE
     Route: 048
     Dates: start: 20200209, end: 20200211
  8. DOXORUBICIN [Suspect]
     Active Substance: DOXORUBICIN
     Indication: DIFFUSE LARGE B-CELL LYMPHOMA
     Dosage: 50 MG/M^2 IV ON DAY 1 ?DATE OF MOST RECENT DOSE OF DOXORUBICIN (79.5 MG) PRIOR TO SAE ONSET WAS ON 0
     Route: 042
     Dates: start: 20191127
  9. OMEPRAZOLE. [Concomitant]
     Active Substance: OMEPRAZOLE
     Route: 048
     Dates: start: 20191217
  10. MAGNESIUM ISOGLYCYRRHIZINATE [Concomitant]
     Active Substance: MAGNESIUM ISOGLYCYRRHIZINATE
     Route: 042
     Dates: start: 20200131, end: 20200205
  11. PREDNISONE ACETATE [Concomitant]
     Active Substance: PREDNISONE ACETATE
     Route: 048
     Dates: start: 20200206, end: 20200208
  12. RITUXIMAB. [Suspect]
     Active Substance: RITUXIMAB
     Indication: DIFFUSE LARGE B-CELL LYMPHOMA
     Dosage: 375 MILLIGRAMS PER SQUARE METER (MG/M^2) IV, ?DATE OF MOST RECENT DOSE OF RITUXIMAB (596.25 MG) PRIO
     Route: 042
     Dates: start: 20191126
  13. CYCLOPHOSPHAMIDE. [Suspect]
     Active Substance: CYCLOPHOSPHAMIDE
     Indication: DIFFUSE LARGE B-CELL LYMPHOMA
     Dosage: 750 MG/M^2 IV, ?DATE OF MOST RECENT DOSE OF CYCLOPHOSPHAMIDE (1192.5 MG) PRIOR TO SAE ONSET WAS ON 0
     Route: 042
     Dates: start: 20191127
  14. PROMETHAZINE HYDROCHLORIDE. [Concomitant]
     Active Substance: PROMETHAZINE HYDROCHLORIDE
     Route: 042
     Dates: start: 20200220, end: 20200220
  15. PLACEBO [Suspect]
     Active Substance: UNSPECIFIED INGREDIENT
     Indication: DIFFUSE LARGE B-CELL LYMPHOMA
     Dosage: DATE OF MOST RECENT DOSE OF PLACEBO PRIOR TO SAE ONSET: 08/JAN/2020
     Route: 042
     Dates: start: 20191127
  16. OMEPRAZOLE. [Concomitant]
     Active Substance: OMEPRAZOLE
     Route: 048
     Dates: start: 20200206, end: 20200214
  17. SOLU?MEDROL [Concomitant]
     Active Substance: METHYLPREDNISOLONE SODIUM SUCCINATE
     Route: 042
     Dates: start: 20200201, end: 20200202
  18. PALONOSETRON HYDROCHLORIDE. [Concomitant]
     Active Substance: PALONOSETRON HYDROCHLORIDE
     Route: 042
     Dates: start: 20200108, end: 20200108
  19. OXYCONTIN [Concomitant]
     Active Substance: OXYCODONE HYDROCHLORIDE
     Indication: PAIN
     Route: 048
     Dates: start: 20191118
  20. OMEPRAZOLE. [Concomitant]
     Active Substance: OMEPRAZOLE
     Route: 048
     Dates: start: 20200216, end: 20200217
  21. GLUTATHIONE REDUCED [Concomitant]
     Route: 042
     Dates: start: 20200131, end: 20200205
  22. VINCRISTINE [Suspect]
     Active Substance: VINCRISTINE
     Indication: DIFFUSE LARGE B-CELL LYMPHOMA
     Dosage: DATE OF MOST RECENT DOSE (1 MG/ML) OF BLINDED VINCRISTINE PRIOR TO SAE ONSET: 08/JAN/2020
     Route: 042
     Dates: start: 20191127
  23. PREDNISONE. [Suspect]
     Active Substance: PREDNISONE
     Indication: DIFFUSE LARGE B-CELL LYMPHOMA
     Dosage: 100 MILLIGRAMS PER DAY (MG/DAY) ORALLY (PO) ON DAYS 1?5 OF EVERY 21?DAY CYCLE FOR 6 CYCLES.?DATE OF
     Route: 048
     Dates: start: 20191126
  24. DIAZEPAM. [Concomitant]
     Active Substance: DIAZEPAM
     Route: 048
     Dates: start: 201910, end: 20200330
  25. OMEPRAZOLE. [Concomitant]
     Active Substance: OMEPRAZOLE
     Route: 048
     Dates: start: 20200220, end: 20200224
  26. PREDNISONE ACETATE [Concomitant]
     Active Substance: PREDNISONE ACETATE
     Route: 048
     Dates: start: 20200215, end: 20200217
  27. LACTULOSE. [Concomitant]
     Active Substance: LACTULOSE
     Route: 048
     Dates: start: 20200219, end: 20200221
  28. INDOMETACIN [Concomitant]
     Active Substance: INDOMETHACIN
     Route: 054
     Dates: start: 20200107, end: 20200107
  29. POLYENE PHOSPHATIDYLCHOLINE [Concomitant]
     Active Substance: PHOSPHOLIPID
     Route: 048
     Dates: start: 20200131, end: 20200208
  30. SOLU?MEDROL [Concomitant]
     Active Substance: METHYLPREDNISOLONE SODIUM SUCCINATE
     Route: 042
     Dates: start: 20200131, end: 20200131
  31. PROMETHAZINE HYDROCHLORIDE. [Concomitant]
     Active Substance: PROMETHAZINE HYDROCHLORIDE
     Route: 042
     Dates: start: 20200107, end: 20200107

REACTIONS (1)
  - Pneumonitis [Recovered/Resolved]

NARRATIVE: CASE EVENT DATE: 20200131
